FAERS Safety Report 9819291 (Version 3)
Quarter: 2014Q1

REPORT INFORMATION
  Report Type: Report from Study
  Country: US (occurrence: US)
  Receive Date: 20140115
  Receipt Date: 20140130
  Transmission Date: 20141002
  Serious: No
  Sender: FDA-Public Use
  Company Number: US-TEVA-455711USA

PATIENT
  Age: 47 Year
  Sex: Female

DRUGS (2)
  1. CLARAVIS [Suspect]
     Dosage: 30MG BID ALT 20MG BID
     Dates: start: 20131218
  2. MYORISAN [Suspect]
     Dosage: 30MG BID ALT WITH 20MG BID
     Dates: start: 20131218

REACTIONS (1)
  - Pregnancy test false positive [Recovered/Resolved]
